FAERS Safety Report 5971096 (Version 18)
Quarter: 2013Q2

REPORT INFORMATION
  Report Type: Spontaneous
  Country: US (occurrence: US)
  Receive Date: 20060127
  Receipt Date: 20130426
  Transmission Date: 20140414
  Serious: Yes (Hospitalization, Other)
  Sender: FDA-Public Use
  Company Number: PHEH2006US01247

PATIENT
  Age: 83 Year
  Sex: Male
  Weight: 175 kg

DRUGS (12)
  1. ZOMETA [Suspect]
     Indication: HYPERCALCAEMIA OF MALIGNANCY
     Route: 042
     Dates: start: 2004
  2. AREDIA [Suspect]
     Dosage: 90 MG
     Route: 042
     Dates: start: 20040806
  3. PLAVIX [Concomitant]
  4. ASPIRIN [Concomitant]
  5. LIPITOR [Concomitant]
  6. ATENOLOL [Concomitant]
  7. OMEGA 3 [Concomitant]
  8. VITAMIN B12 [Concomitant]
  9. FOLIC ACID [Concomitant]
  10. XANAX [Concomitant]
  11. FLOMAX [Concomitant]
  12. VESICARE [Concomitant]

REACTIONS (74)
  - Urinary tract infection [Unknown]
  - Sepsis [Unknown]
  - Mental status changes [Recovered/Resolved]
  - Osteonecrosis of jaw [Recovering/Resolving]
  - Fistula [Recovering/Resolving]
  - Pain in jaw [Recovering/Resolving]
  - Osteomyelitis [Recovering/Resolving]
  - Swelling [Recovering/Resolving]
  - Oedema [Recovering/Resolving]
  - Biopsy bone abnormal [Recovering/Resolving]
  - Toothache [Recovering/Resolving]
  - Infection [Recovering/Resolving]
  - Primary sequestrum [Recovering/Resolving]
  - Purulent discharge [Recovering/Resolving]
  - Cyst [Recovering/Resolving]
  - Bone disorder [Recovering/Resolving]
  - Bone density decreased [Recovering/Resolving]
  - Culture [Unknown]
  - Deafness [Recovering/Resolving]
  - Loss of consciousness [Unknown]
  - Fall [Unknown]
  - Anaemia [Unknown]
  - Lung infiltration [Unknown]
  - Coronary artery disease [Unknown]
  - Cerebrovascular accident [Unknown]
  - Cognitive disorder [Unknown]
  - Pancytopenia [Unknown]
  - Atelectasis [Unknown]
  - Arteriosclerosis [Unknown]
  - Dementia [Unknown]
  - Hyperlipidaemia [Unknown]
  - Blood pressure increased [Unknown]
  - Nuclear magnetic resonance imaging brain [Unknown]
  - Cough [Unknown]
  - Insomnia [Unknown]
  - Areflexia [Unknown]
  - Atrophy [Unknown]
  - Spinal osteoarthritis [Unknown]
  - Scoliosis [Unknown]
  - Amnesia [Unknown]
  - Oesophagitis ulcerative [Unknown]
  - Peptic ulcer [Unknown]
  - Diverticulum intestinal [Unknown]
  - Osteopenia [Unknown]
  - Gastritis [Unknown]
  - Helicobacter infection [Unknown]
  - Bacterial disease carrier [Unknown]
  - Nodule [Unknown]
  - Oesophageal disorder [Unknown]
  - Denture wearer [Unknown]
  - Lumbar spinal stenosis [Unknown]
  - Osteosclerosis [Unknown]
  - Compression fracture [Unknown]
  - Intervertebral disc protrusion [Unknown]
  - Osteoporosis [Unknown]
  - Pleural effusion [Unknown]
  - Hypertonic bladder [Unknown]
  - Heart rate irregular [Unknown]
  - Convulsion [Unknown]
  - Pneumonia [Unknown]
  - Muscular weakness [Unknown]
  - Cataract [Unknown]
  - Left atrial dilatation [Unknown]
  - Left ventricular hypertrophy [Unknown]
  - Intervertebral disc degeneration [Unknown]
  - Spondylolisthesis [Unknown]
  - Hypertension [Unknown]
  - Vascular calcification [Unknown]
  - Exostosis [Unknown]
  - Hypoglycaemia [Unknown]
  - Dyspnoea [Unknown]
  - Intervertebral disc space narrowing [Unknown]
  - Facial bones fracture [Unknown]
  - Urinary incontinence [Unknown]
